FAERS Safety Report 9333258 (Version 4)
Quarter: 2013Q3

REPORT INFORMATION
  Report Type: Report from Study
  Country: US (occurrence: US)
  Receive Date: 20130606
  Receipt Date: 20130923
  Transmission Date: 20140515
  Serious: Yes (Hospitalization, Other)
  Sender: FDA-Public Use
  Company Number: US-JNJFOC-20130508440

PATIENT
  Age: 72 Year
  Sex: Male
  Weight: 78.93 kg

DRUGS (25)
  1. REMICADE [Suspect]
     Indication: RHEUMATOID ARTHRITIS
     Dosage: FIRST INFUSION
     Route: 042
     Dates: start: 20130401
  2. REMICADE [Suspect]
     Indication: RHEUMATOID ARTHRITIS
     Dosage: SECOND INFUSION
     Route: 042
     Dates: start: 20130415, end: 20130415
  3. METOPROLOL [Concomitant]
     Route: 065
  4. OMEPRAZOLE [Concomitant]
     Route: 065
  5. ZANTAC [Concomitant]
     Route: 048
  6. CRESTOR [Concomitant]
     Indication: HYPERLIPIDAEMIA
     Dosage: START DATE: OVER 5 YEARS AGO
     Route: 048
  7. ASPIRIN [Concomitant]
     Route: 048
  8. ASPIRIN [Concomitant]
     Route: 048
  9. CLARITIN [Concomitant]
     Route: 048
  10. BENTYL [Concomitant]
     Indication: IRRITABLE BOWEL SYNDROME
     Route: 065
  11. BENTYL [Concomitant]
     Indication: IRRITABLE BOWEL SYNDROME
     Dosage: START DATE: OVER 5 YEARS
     Route: 065
  12. UROXATRAL [Concomitant]
     Route: 048
  13. GLUCOSAMINE [Concomitant]
     Dosage: DOSE 1500 (UNSPECIFIED)
     Route: 065
  14. CHONDROITIN [Concomitant]
     Dosage: DOSE 1200 (UNITS UNSPECIFIED)
     Route: 065
  15. CENTRUM SILVER [Concomitant]
     Route: 065
  16. FINASTERIDE [Concomitant]
     Route: 065
  17. LOPRESSOR [Concomitant]
     Indication: HYPERTENSION
     Route: 048
  18. LOPRESSOR [Concomitant]
     Indication: HYPERTENSION
     Dosage: WITH MEALS
     Route: 048
  19. PRILOSEC [Concomitant]
     Indication: GASTROOESOPHAGEAL REFLUX DISEASE
     Route: 048
  20. ENBREL [Concomitant]
     Route: 058
  21. LORTAB [Concomitant]
     Indication: PAIN
     Dosage: 7.5-500 MG 1 TABLET EVERY 4-6 HOURS AS NEEDED
     Route: 048
  22. UNKNOWN MEDICATION [Concomitant]
     Indication: ANALGESIC THERAPY
     Dosage: 2 CAPSULES EVERY 6 HOURS AS NEEDED
     Route: 048
  23. NITROGLYCERIN [Concomitant]
     Dosage: 1ST SIGN OF ATTACK, REPEAT EVERY 5 MINUTES TILL RELIEF.
     Route: 060
  24. TYLENOL [Concomitant]
     Indication: PREMEDICATION
     Route: 048
     Dates: start: 20130401
  25. BENADRYL [Concomitant]
     Indication: PREMEDICATION
     Route: 048
     Dates: start: 20130415

REACTIONS (9)
  - Nausea [Recovered/Resolved]
  - Shock [Recovered/Resolved]
  - Infusion related reaction [Recovered/Resolved]
  - Back pain [Recovered/Resolved]
  - Dyspnoea [Recovered/Resolved]
  - Muscular weakness [Recovered/Resolved]
  - Tremor [Recovered/Resolved]
  - Chest pain [Recovered/Resolved]
  - Drug hypersensitivity [Unknown]
